FAERS Safety Report 5954853-6 (Version None)
Quarter: 2008Q4

REPORT INFORMATION
  Report Type: 
  Country: None (occurrence: None)
  Receive Date: 20081117
  Receipt Date: 20081106
  Transmission Date: 20090506
  Serious: Yes (Hospitalization)
  Sender: FDA-Public Use
  Company Number: US-ABBOTT-08P-163-0485452-00

PATIENT
  Sex: Female

DRUGS (4)
  1. HUMIRA [Suspect]
     Indication: PSORIASIS
     Dates: start: 20081030
  2. HUMIRA [Suspect]
     Indication: PSORIATIC ARTHROPATHY
     Dosage: ON HOLD FOR A PREVIOUS SINUS INFECTION
  3. ALPRAZOLAM [Suspect]
     Indication: DEPRESSION
  4. ALPRAZOLAM [Suspect]
     Indication: ANXIETY

REACTIONS (5)
  - ANXIETY [None]
  - DEPRESSION [None]
  - OVERDOSE [None]
  - PAIN OF SKIN [None]
  - SINUSITIS [None]
